FAERS Safety Report 5542389-6 (Version None)
Quarter: 2007Q4

REPORT INFORMATION
  Report Type: 
  Country: None (occurrence: None)
  Receive Date: 20071129
  Receipt Date: 20070403
  Transmission Date: 20080405
  Serious: Yes (Hospitalization)
  Sender: FDA-Public Use
  Company Number: US200704000942

PATIENT
  Age: 40 Year
  Sex: Female

DRUGS (1)
  1. ZYPREXA [Suspect]
     Indication: PSYCHOTIC DISORDER
     Dosage: 10 MG, INTRAMUSCULAR
     Route: 030

REACTIONS (1)
  - HEART RATE INCREASED [None]
